FAERS Safety Report 9990640 (Version 1)
Quarter: 2014Q1

REPORT INFORMATION
  Report Type: Report from Study
  Country: US (occurrence: US)
  Receive Date: 20140310
  Receipt Date: 20140310
  Transmission Date: 20141002
  Serious: No
  Sender: FDA-Public Use
  Company Number: US-ABBVIE-13P-163-1137805-00

PATIENT
  Age: 44 Year
  Sex: Female
  Weight: 74.91 kg

DRUGS (4)
  1. HUMIRA [Suspect]
     Indication: HIDRADENITIS
     Dates: start: 2011, end: 201307
  2. DOXYCYCLINE [Concomitant]
     Indication: HIDRADENITIS
  3. VITAMIN B 12 [Concomitant]
     Indication: HYPOVITAMINOSIS
  4. LORAZEPAM [Concomitant]
     Indication: ANXIETY

REACTIONS (1)
  - Nodule [Not Recovered/Not Resolved]
